FAERS Safety Report 10195117 (Version 2)
Quarter: 2014Q2

REPORT INFORMATION
  Report Type: Report from Study
  Country: GB (occurrence: GB)
  Receive Date: 20140526
  Receipt Date: 20140526
  Transmission Date: 20141212
  Serious: Yes (Other)
  Sender: FDA-Public Use
  Company Number: GB-THROMBOGENICS NV-JET-2014-261

PATIENT
  Sex: Female

DRUGS (6)
  1. JETREA [Suspect]
     Indication: MACULAR HOLE
     Dosage: 0.125 MG, ONE TIME DOSE
     Route: 031
     Dates: start: 20140415, end: 20140415
  2. JETREA [Suspect]
     Indication: VITREOUS ADHESIONS
  3. INSULIN [Concomitant]
     Indication: DIABETES MELLITUS
     Dosage: UNK
  4. AMLODIPINE [Concomitant]
     Indication: HYPERTENSION
     Dosage: 5 MG, QD
  5. ATORVASTATIN [Concomitant]
     Indication: BLOOD CHOLESTEROL INCREASED
     Dosage: 40 MG, QD
  6. LEVOTHYROXINE [Concomitant]
     Indication: HYPOTHYROIDISM
     Dosage: 100 MG, QD

REACTIONS (14)
  - Macular hole [Recovered/Resolved]
  - Disease progression [Recovered/Resolved]
  - Retinal oedema [Not Recovered/Not Resolved]
  - Retinal injury [Unknown]
  - Visual acuity reduced [Recovering/Resolving]
  - Pupillary reflex impaired [Unknown]
  - Photophobia [Unknown]
  - Photopsia [Unknown]
  - Metamorphopsia [Unknown]
  - Eye pain [Unknown]
  - Ocular hyperaemia [Unknown]
  - Vitreous floaters [Unknown]
  - Vision blurred [Unknown]
  - Retinogram abnormal [Unknown]
